FAERS Safety Report 10250762 (Version 1)
Quarter: 2014Q2

REPORT INFORMATION
  Report Type: Other
  Country: FR (occurrence: FR)
  Receive Date: 20140620
  Receipt Date: 20140620
  Transmission Date: 20141212
  Serious: Yes (Other)
  Sender: FDA-Public Use
  Company Number: FR-BRISTOL-MYERS SQUIBB COMPANY-21068838

PATIENT
  Sex: 0

DRUGS (1)
  1. METFORMIN HCL [Suspect]

REACTIONS (1)
  - Pancreatitis acute [Unknown]
